FAERS Safety Report 25606362 (Version 1)
Quarter: 2025Q3

REPORT INFORMATION
  Report Type: Spontaneous
  Country: US (occurrence: US)
  Receive Date: 20250725
  Receipt Date: 20250725
  Transmission Date: 20251020
  Serious: No
  Sender: RECORDATI
  Company Number: US-RECORDATI RARE DISEASE INC.-2024005402

PATIENT

DRUGS (2)
  1. SILTUXIMAB [Suspect]
     Active Substance: SILTUXIMAB
     Indication: Castleman^s disease
  2. SILTUXIMAB [Suspect]
     Active Substance: SILTUXIMAB

REACTIONS (2)
  - Infusion related reaction [Unknown]
  - Wrong technique in product usage process [Recovered/Resolved]
